FAERS Safety Report 7570728-3 (Version None)
Quarter: 2011Q2

REPORT INFORMATION
  Report Type: 
  Country: None (occurrence: None)
  Receive Date: 20110624
  Receipt Date: 20110511
  Transmission Date: 20111010
  Serious: No
  Sender: FDA-Public Use
  Company Number: US-ALLERGAN-1106456US

PATIENT
  Age: 61 Year
  Sex: Female

DRUGS (2)
  1. ARTIFICIAL TEARS [Concomitant]
  2. LATISSE [Suspect]
     Indication: GROWTH OF EYELASHES
     Dosage: 1 GTT, QHS
     Dates: start: 20100101, end: 20100501

REACTIONS (4)
  - EYELID IRRITATION [None]
  - EYELID OEDEMA [None]
  - DACRYOCANALICULITIS [None]
  - DACRYOLITH [None]
